FAERS Safety Report 22984427 (Version 2)
Quarter: 2023Q4

REPORT INFORMATION
  Report Type: Report from Study
  Country: CO (occurrence: CO)
  Receive Date: 20230926
  Receipt Date: 20231005
  Transmission Date: 20240110
  Serious: Yes (Death, Hospitalization)
  Sender: FDA-Public Use
  Company Number: CO-HBP-2023CO029659

PATIENT
  Age: 81 Year
  Sex: Male

DRUGS (4)
  1. MECHLORETHAMINE HYDROCHLORIDE [Suspect]
     Active Substance: MECHLORETHAMINE HYDROCHLORIDE
     Indication: Cutaneous T-cell lymphoma
     Dosage: ONE APPLICATION ON LESIONS (AT NIGHT) EVERY 24 HOURS
     Route: 061
     Dates: start: 20220621, end: 202308
  2. MECHLORETHAMINE HYDROCHLORIDE [Suspect]
     Active Substance: MECHLORETHAMINE HYDROCHLORIDE
     Dosage: ONE APPLICATION EVERY 72 HOURS
     Route: 061
     Dates: start: 202308, end: 20230910
  3. CLOBETASOL [Concomitant]
     Active Substance: CLOBETASOL
     Indication: Cutaneous T-cell lymphoma
     Dosage: ONE APPLICATION EVERY 24 HOURS
     Route: 061
     Dates: start: 202303
  4. COSMETICS [Concomitant]
     Active Substance: COSMETICS
     Indication: Dry skin
     Dosage: ONE APPLICATION EVERY 24 HOURS
     Dates: end: 20230910

REACTIONS (2)
  - Death [Fatal]
  - Application site pain [Not Recovered/Not Resolved]

NARRATIVE: CASE EVENT DATE: 20230801
